FAERS Safety Report 9677696 (Version 1)
Quarter: 2013Q4

REPORT INFORMATION
  Report Type: Spontaneous
  Country: DE (occurrence: DE)
  Receive Date: 20131108
  Receipt Date: 20131108
  Transmission Date: 20140711
  Serious: Yes (Congenital Anomaly)
  Sender: FDA-Public Use
  Company Number: DE-JNJFOC-20131019327

PATIENT
  Sex: Female
  Weight: 3.04 kg

DRUGS (6)
  1. TOPAMAX [Suspect]
     Indication: PARTIAL SEIZURES
     Route: 064
     Dates: start: 20120704, end: 20130406
  2. TIMONIL [Suspect]
     Indication: PARTIAL SEIZURES
     Route: 064
     Dates: start: 20120704, end: 20130406
  3. TIMOLOL OPHTHALMIC SOLUTION [Suspect]
     Indication: GLAUCOMA
     Route: 064
  4. MINPROSTIN [Suspect]
     Indication: LABOUR INDUCTION
     Route: 064
  5. TIMOLOL MALEATE [Suspect]
     Indication: GLAUCOMA
     Route: 064
  6. FOLSAURE [Concomitant]
     Indication: PROPHYLAXIS OF NEURAL TUBE DEFECT
     Route: 064

REACTIONS (3)
  - Congenital mitral valve incompetence [Unknown]
  - Atrioventricular septal defect [Unknown]
  - Foetal exposure during pregnancy [Recovered/Resolved]
